FAERS Safety Report 13725528 (Version 1)
Quarter: 2017Q3

REPORT INFORMATION
  Report Type: Spontaneous
  Country: IL (occurrence: IL)
  Receive Date: 20170707
  Receipt Date: 20170707
  Transmission Date: 20171127
  Serious: Yes (Other)
  Sender: FDA-Public Use
  Company Number: IL-009507513-1706ISR011269

PATIENT
  Age: 58 Year
  Sex: Female

DRUGS (1)
  1. PEMBROLIZUMAB. [Suspect]
     Active Substance: PEMBROLIZUMAB
     Indication: MALIGNANT MELANOMA
     Dosage: UNK
     Dates: end: 201612

REACTIONS (5)
  - Asthenia [Unknown]
  - Autoimmune disorder [Unknown]
  - Headache [Unknown]
  - Confusional state [Unknown]
  - Eosinophilia [Unknown]

NARRATIVE: CASE EVENT DATE: 2017
